FAERS Safety Report 11044831 (Version 2)
Quarter: 2015Q2

REPORT INFORMATION
  Report Type: Spontaneous
  Country: US (occurrence: US)
  Receive Date: 20150417
  Receipt Date: 20150424
  Transmission Date: 20150821
  Serious: No
  Sender: FDA-Public Use
  Company Number: US-TEVA-554123USA

PATIENT
  Sex: Male
  Weight: 86.26 kg

DRUGS (6)
  1. COPAXONE [Concomitant]
     Active Substance: GLATIRAMER ACETATE
     Indication: MULTIPLE SCLEROSIS
  2. AMITIZA [Concomitant]
     Active Substance: LUBIPROSTONE
  3. SIMVASTATIN. [Concomitant]
     Active Substance: SIMVASTATIN
     Indication: BLOOD CHOLESTEROL INCREASED
  4. PROVIGIL [Suspect]
     Active Substance: MODAFINIL
     Indication: MULTIPLE SCLEROSIS
     Dosage: DOSE AND FREQUENCY NOT PROVIDED
     Route: 065
  5. NUVIGIL [Suspect]
     Active Substance: ARMODAFINIL
     Indication: MULTIPLE SCLEROSIS
     Dosage: DOSE AND FREQUENCY NOT PROVIDED
     Route: 065
  6. LISINOPRIL. [Concomitant]
     Active Substance: LISINOPRIL
     Indication: HYPERTENSION

REACTIONS (2)
  - Drug ineffective for unapproved indication [Unknown]
  - Product use issue [Unknown]
